FAERS Safety Report 4834168-X (Version None)
Quarter: 2005Q4

REPORT INFORMATION
  Report Type: 
  Country: None (occurrence: None)
  Receive Date: 20051122
  Receipt Date: 20051110
  Transmission Date: 20060501
  Serious: Yes (Hospitalization)
  Sender: FDA-Public Use
  Company Number: PHRM2005FR02974

PATIENT
  Age: 42 Year
  Sex: Male
  Weight: 60 kg

DRUGS (12)
  1. CIFLOX [Suspect]
     Dosage: 500 MG, BID
     Route: 048
     Dates: start: 20050914, end: 20050915
  2. PLAQUENIL [Concomitant]
     Route: 048
  3. TAHOR [Concomitant]
     Route: 048
  4. ESOMEPRAZOLE (INEXIUM) [Concomitant]
     Route: 065
  5. ASPEGIC 325 [Concomitant]
     Route: 065
  6. SPECIAFOLDINE [Concomitant]
     Route: 048
  7. LEXOMIL [Concomitant]
     Route: 048
  8. BRICANYL [Concomitant]
     Route: 065
  9. SYMBICORT TURBUHALER [Concomitant]
  10. FORADIL [Suspect]
     Dosage: 12 UG, QD
     Dates: start: 20050914, end: 20050915
  11. TICARPEN [Concomitant]
  12. ENALAPRIL MALEATE [Concomitant]
     Route: 048

REACTIONS (6)
  - HYPERSENSITIVITY [None]
  - NASOPHARYNGEAL DISORDER [None]
  - OCULAR HYPERAEMIA [None]
  - ORAL PRURITUS [None]
  - TENDON DISORDER [None]
  - TENDON INJURY [None]
